FAERS Safety Report 4921527-X (Version None)
Quarter: 2006Q1

REPORT INFORMATION
  Report Type: 
  Country: None (occurrence: None)
  Receive Date: 20060221
  Receipt Date: 20060213
  Transmission Date: 20060701
  Serious: Yes (Other)
  Sender: FDA-Public Use
  Company Number: 200610143BYL

PATIENT
  Age: 89 Year
  Sex: Female
  Weight: 55 kg

DRUGS (10)
  1. AVELOX [Suspect]
     Indication: PNEUMONIA
     Dosage: 400 MG, QD, ORAL
     Route: 048
     Dates: start: 20060124, end: 20060126
  2. ROCEPHIN [Concomitant]
  3. AMARYL [Concomitant]
  4. BASEN [Concomitant]
  5. ADALAT [Concomitant]
  6. DIOVAN [Concomitant]
  7. LIPOVAS ^BANYU^ [Concomitant]
  8. PAXIL [Concomitant]
  9. TORSEMIDE [Concomitant]
  10. ALDACTONE [Concomitant]

REACTIONS (4)
  - DIARRHOEA [None]
  - DRUG LEVEL INCREASED [None]
  - HYPOGLYCAEMIA [None]
  - LOSS OF CONSCIOUSNESS [None]
